FAERS Safety Report 9361402 (Version 1)
Quarter: 2013Q2

REPORT INFORMATION
  Report Type: Spontaneous
  Country: CZ (occurrence: CZ)
  Receive Date: 20130621
  Receipt Date: 20130621
  Transmission Date: 20140414
  Serious: Yes (Other)
  Sender: FDA-Public Use
  Company Number: CZ-MPIJNJ-2013-04724

PATIENT
  Sex: 0

DRUGS (2)
  1. VELCADE [Suspect]
     Indication: KIDNEY TRANSPLANT REJECTION
     Dosage: 1.3 MG/M2, CYCLIC
     Route: 065
  2. RITUXIMAB [Suspect]
     Indication: KIDNEY TRANSPLANT REJECTION
     Dosage: 375 MG/M2, CYCLIC
     Route: 065

REACTIONS (2)
  - Colitis [Unknown]
  - Off label use [Unknown]
